FAERS Safety Report 10680172 (Version 2)
Quarter: 2015Q1

REPORT INFORMATION
  Report Type: Spontaneous
  Country: DE (occurrence: DE)
  Receive Date: 20141229
  Receipt Date: 20150210
  Transmission Date: 20150720
  Serious: Yes (Hospitalization, Other)
  Sender: FDA-Public Use
  Company Number: DE-JNJFOC-20141212662

PATIENT

DRUGS (1)
  1. RISPERIDONE. [Suspect]
     Active Substance: RISPERIDONE
     Indication: SCHIZOPHRENIA
     Route: 030

REACTIONS (7)
  - Anxiety [Unknown]
  - Weight increased [Unknown]
  - Schizophrenia [Unknown]
  - Psychotic disorder [Unknown]
  - Somnolence [Unknown]
  - Hospitalisation [Unknown]
  - Insomnia [Unknown]
